FAERS Safety Report 17364748 (Version 1)
Quarter: 2020Q1

REPORT INFORMATION
  Report Type: Spontaneous
  Country: US (occurrence: US)
  Receive Date: 20200204
  Receipt Date: 20200204
  Transmission Date: 20200409
  Serious: No
  Sender: FDA-Public Use
  Company Number: US-AMGEN INC.-USASP2020017124

PATIENT
  Age: 59 Year
  Sex: Female

DRUGS (5)
  1. AIMOVIG [Suspect]
     Active Substance: ERENUMAB-AOOE
     Indication: MIGRAINE PROPHYLAXIS
     Dosage: 140 MILLIGRAM
     Route: 065
     Dates: start: 2019
  2. TOPAMAX [Concomitant]
     Active Substance: TOPIRAMATE
  3. CALCIUM [Concomitant]
     Active Substance: CALCIUM
  4. PHENTERMINE. [Concomitant]
     Active Substance: PHENTERMINE
  5. ESTROGEN [Concomitant]
     Active Substance: ESTROGENS

REACTIONS (1)
  - Injection site urticaria [Unknown]

NARRATIVE: CASE EVENT DATE: 2019
